FAERS Safety Report 18867685 (Version 2)
Quarter: 2021Q1

REPORT INFORMATION
  Report Type: Spontaneous
  Country: US (occurrence: US)
  Receive Date: 20210209
  Receipt Date: 20210225
  Transmission Date: 20210420
  Serious: Yes (Hospitalization)
  Sender: FDA-Public Use
  Company Number: US-PFIZER INC-2021116709

PATIENT
  Sex: Female

DRUGS (1)
  1. EPINEPHRINE. [Suspect]
     Active Substance: EPINEPHRINE
     Dosage: UNK

REACTIONS (6)
  - Drug hypersensitivity [Unknown]
  - Nausea [Unknown]
  - Tremor [Unknown]
  - Urticaria [Unknown]
  - Headache [Unknown]
  - Swollen tongue [Unknown]
